FAERS Safety Report 10229220 (Version 2)
Quarter: 2014Q3

REPORT INFORMATION
  Report Type: Spontaneous
  Country: JP (occurrence: JP)
  Receive Date: 20140611
  Receipt Date: 20140717
  Transmission Date: 20150326
  Serious: No
  Sender: FDA-Public Use
  Company Number: JP-ROCHE-1416023

PATIENT
  Age: 58 Year
  Sex: Male

DRUGS (2)
  1. LUCENTIS [Suspect]
     Active Substance: RANIBIZUMAB
     Indication: MACULAR OEDEMA
     Route: 050
     Dates: start: 20140415, end: 20140415
  2. LUCENTIS [Suspect]
     Active Substance: RANIBIZUMAB
     Indication: RETINAL VEIN OCCLUSION

REACTIONS (1)
  - Ocular hypertension [Recovered/Resolved]

NARRATIVE: CASE EVENT DATE: 20140416
